FAERS Safety Report 8476422-9 (Version None)
Quarter: 2012Q2

REPORT INFORMATION
  Report Type: 
  Country: None (occurrence: None)
  Receive Date: 20120622
  Receipt Date: 20120612
  Transmission Date: 20120825
  Serious: Yes (Other)
  Sender: FDA-Public Use
  Company Number: FK201201685

PATIENT
  Age: 3 Year
  Sex: Female

DRUGS (1)
  1. CARBOPLATIN [Suspect]
     Indication: GLIOMA

REACTIONS (2)
  - ANAPHYLACTIC REACTION [None]
  - SKIN TEST NEGATIVE [None]
